FAERS Safety Report 20930281 (Version 1)
Quarter: 2022Q2

REPORT INFORMATION
  Report Type: Spontaneous
  Country: US (occurrence: US)
  Receive Date: 20220608
  Receipt Date: 20220608
  Transmission Date: 20220720
  Serious: No
  Sender: FDA-Public Use
  Company Number: US-drreddys-SPO/USA/22/0150621

PATIENT
  Age: 20 Year
  Sex: Male
  Weight: 74.8 kg

DRUGS (1)
  1. DIVALPROEX SODIUM [Suspect]
     Active Substance: DIVALPROEX SODIUM
     Indication: Product used for unknown indication
     Dates: start: 20220501

REACTIONS (3)
  - Balance disorder [Unknown]
  - Tremor [Unknown]
  - Product lot number issue [Unknown]
